FAERS Safety Report 21799722 (Version 1)
Quarter: 2022Q4

REPORT INFORMATION
  Report Type: Spontaneous
  Country: US (occurrence: US)
  Receive Date: 20221230
  Receipt Date: 20221230
  Transmission Date: 20230112
  Serious: No
  Sender: FDA-Public Use
  Company Number: US-BIOVITRUM-2022US15433

PATIENT
  Age: 11 Year
  Sex: Male

DRUGS (3)
  1. ANAKINRA [Suspect]
     Active Substance: ANAKINRA
     Indication: Coagulopathy
  2. ANAKINRA [Suspect]
     Active Substance: ANAKINRA
     Indication: Hypertransaminasaemia
  3. ANAKINRA [Suspect]
     Active Substance: ANAKINRA
     Indication: Hyperferritinaemia

REACTIONS (3)
  - Abdominal pain [Unknown]
  - Rectal tenesmus [Unknown]
  - Off label use [Unknown]
